FAERS Safety Report 8722148 (Version 2)
Quarter: 2012Q4

REPORT INFORMATION
  Report Type: 
  Country: US (occurrence: US)
  Receive Date: 20120814
  Receipt Date: 20121023
  Transmission Date: 20130627
  Serious: No
  Sender: FDA-Public Use
  Company Number: US-ELI_LILLY_AND_COMPANY-US201208001999

PATIENT
  Age: 79 Year
  Sex: Female
  Weight: 65.76 kg

DRUGS (2)
  1. CYMBALTA [Suspect]
     Indication: DEPRESSION
     Dosage: 60 mg, unknown
     Route: 048
     Dates: start: 20120829, end: 20120830
  2. LIPITOR [Concomitant]

REACTIONS (1)
  - No adverse event [Unknown]
